FAERS Safety Report 6810474 (Version 9)
Quarter: 2015Q2

REPORT INFORMATION
  Report Type: Report from Study
  Country: US (occurrence: US)
  Receive Date: 20080908
  Receipt Date: 20150513
  Transmission Date: 20150821
  Serious: Yes (Hospitalization, Other)
  Sender: FDA-Public Use
  Company Number: US-BIOGENIDEC-2008BI022561

PATIENT
  Sex: Female
  Weight: 65 kg

DRUGS (5)
  1. AVONEX [Suspect]
     Active Substance: INTERFERON BETA-1A
     Indication: MULTIPLE SCLEROSIS
     Route: 030
     Dates: start: 20100303
  2. PREDNISONE. [Concomitant]
     Active Substance: PREDNISONE
  3. AVONEX [Suspect]
     Active Substance: INTERFERON BETA-1A
     Indication: MULTIPLE SCLEROSIS
     Route: 030
     Dates: start: 20080523, end: 20091227
  4. AVONEX [Suspect]
     Active Substance: INTERFERON BETA-1A
     Indication: MULTIPLE SCLEROSIS
     Route: 030
     Dates: start: 19990601, end: 2003
  5. AVONEX [Suspect]
     Active Substance: INTERFERON BETA-1A
     Indication: MULTIPLE SCLEROSIS
     Route: 030
     Dates: start: 2003, end: 20080107

REACTIONS (21)
  - Post procedural infection [Recovered/Resolved]
  - Seizure [Recovered/Resolved]
  - Pain in extremity [Not Recovered/Not Resolved]
  - Chills [Unknown]
  - Pyrexia [Unknown]
  - Musculoskeletal pain [Unknown]
  - Musculoskeletal disorder [Unknown]
  - Gait disturbance [Unknown]
  - Multiple sclerosis relapse [Recovered/Resolved]
  - Status epilepticus [Recovered/Resolved]
  - Multiple sclerosis [Unknown]
  - Procedural pain [Unknown]
  - Urinary tract infection [Unknown]
  - Hypoaesthesia [Not Recovered/Not Resolved]
  - Osteonecrosis [Recovered/Resolved]
  - Bone marrow failure [Recovered/Resolved]
  - Blood pressure increased [Recovered/Resolved]
  - Peroneal nerve palsy [Unknown]
  - Urinary tract disorder [Unknown]
  - Dry mouth [Not Recovered/Not Resolved]
  - Mobility decreased [Recovered/Resolved]

NARRATIVE: CASE EVENT DATE: 2006
